FAERS Safety Report 21242747 (Version 2)
Quarter: 2022Q3

REPORT INFORMATION
  Report Type: Spontaneous
  Country: AR (occurrence: AR)
  Receive Date: 20220823
  Receipt Date: 20220824
  Transmission Date: 20221027
  Serious: Yes (Other)
  Sender: FDA-Public Use
  Company Number: AR-PFIZER INC-PV202200045870

PATIENT
  Age: 60 Year
  Sex: Female

DRUGS (3)
  1. XELJANZ [Suspect]
     Active Substance: TOFACITINIB CITRATE
     Indication: Rheumatoid arthritis
     Dosage: 5 MG, 2X/DAY (EVERY 12 HOURS)
     Dates: start: 2016
  2. METHOTREXATE [Concomitant]
     Active Substance: METHOTREXATE
  3. SULFASALAZINE [Concomitant]
     Active Substance: SULFASALAZINE

REACTIONS (6)
  - Loss of personal independence in daily activities [Unknown]
  - Product prescribing issue [Unknown]
  - Rheumatoid factor increased [Unknown]
  - Red blood cell sedimentation rate increased [Unknown]
  - C-reactive protein increased [Unknown]
  - Anti-cyclic citrullinated peptide antibody positive [Unknown]

NARRATIVE: CASE EVENT DATE: 20201221
